FAERS Safety Report 4647788-2 (Version None)
Quarter: 2005Q2

REPORT INFORMATION
  Report Type: 
  Country: None (occurrence: None)
  Receive Date: 20050426
  Receipt Date: 20050413
  Transmission Date: 20051028
  Serious: No
  Sender: FDA-Public Use
  Company Number: 05P-167-0294774-00

PATIENT
  Age: 64 Year
  Sex: Female
  Weight: 40 kg

DRUGS (5)
  1. HUMIRA [Suspect]
     Indication: RHEUMATOID ARTHRITIS
     Dosage: 40 MG, 1 IN 2 WK, SUBCUTANEOUS
     Route: 058
     Dates: start: 20040801, end: 20041101
  2. METHOTREXATE [Concomitant]
  3. FOLIC ACID [Concomitant]
  4. THYROXINE [Concomitant]
  5. RISEDRONATE SODIUM [Concomitant]

REACTIONS (3)
  - BRONCHIECTASIS [None]
  - HAEMOPHILUS INFECTION [None]
  - PNEUMONIA STREPTOCOCCAL [None]
